FAERS Safety Report 20899312 (Version 2)
Quarter: 2022Q2

REPORT INFORMATION
  Report Type: Spontaneous
  Country: US (occurrence: US)
  Receive Date: 20220601
  Receipt Date: 20220627
  Transmission Date: 20220720
  Serious: Yes (Other)
  Sender: FDA-Public Use
  Company Number: US-SUN PHARMACEUTICAL INDUSTRIES LTD-2022R1-331539

PATIENT
  Age: 61 Year
  Sex: Female

DRUGS (1)
  1. ILUMYA [Suspect]
     Active Substance: TILDRAKIZUMAB-ASMN
     Indication: Psoriasis
     Dosage: 100 MILLIGRAM, EVERY 3 MONTHS
     Route: 058
     Dates: start: 20210923

REACTIONS (4)
  - Neck mass [Recovering/Resolving]
  - Psoriasis [Unknown]
  - Product dose omission issue [Unknown]
  - Pain [Unknown]

NARRATIVE: CASE EVENT DATE: 20220519
